FAERS Safety Report 14249744 (Version 1)
Quarter: 2017Q4

REPORT INFORMATION
  Report Type: Spontaneous
  Country: US (occurrence: US)
  Receive Date: 20171204
  Receipt Date: 20171204
  Transmission Date: 20180321
  Serious: Yes (Hospitalization)
  Sender: FDA-Public Use
  Company Number: None

PATIENT
  Sex: Female
  Weight: 85.05 kg

DRUGS (1)
  1. ROPINOROLE [Suspect]
     Active Substance: ROPINIROLE
     Indication: RESTLESS LEGS SYNDROME
     Dates: start: 20170901, end: 20171202

REACTIONS (4)
  - Hypotension [None]
  - Incorrect dose administered [None]
  - Confusional state [None]
  - Hypertensive crisis [None]
